FAERS Safety Report 6677828-0 (Version None)
Quarter: 2010Q2

REPORT INFORMATION
  Report Type: 
  Country: None (occurrence: None)
  Receive Date: 20100412
  Receipt Date: 20100310
  Transmission Date: 20101027
  Serious: Yes (Death)
  Sender: FDA-Public Use
  Company Number: US-ALEXION-A201000158

PATIENT
  Sex: Female

DRUGS (2)
  1. SOLIRIS [Suspect]
     Indication: PAROXYSMAL NOCTURNAL HAEMOGLOBINURIA
     Dosage: 600 MG, QW X 4 WEEKS
     Route: 042
     Dates: start: 20071221, end: 20080111
  2. SOLIRIS [Suspect]
     Dosage: 900 MG, Q 2W
     Route: 042
     Dates: start: 20080204

REACTIONS (1)
  - DEATH [None]
